FAERS Safety Report 6253473-6 (Version None)
Quarter: 2009Q3

REPORT INFORMATION
  Report Type: 
  Country: None (occurrence: None)
  Receive Date: 20090701
  Receipt Date: 20090629
  Transmission Date: 20100115
  Serious: Yes (Other)
  Sender: FDA-Public Use
  Company Number: AT-ROXANE LABORATORIES, INC.-2009-RO-00636RO

PATIENT
  Age: 4 Week
  Sex: Female

DRUGS (7)
  1. DEXAMETHASONE [Suspect]
     Indication: ACUTE LYMPHOCYTIC LEUKAEMIA
  2. AMPHOTERICIN B [Suspect]
     Indication: INFECTION PROPHYLAXIS
     Route: 048
  3. TRIMETHOPRIM/SULPHAMETHOXAZOLE [Suspect]
     Indication: INFECTION PROPHYLAXIS
  4. POSACONAZOLE [Concomitant]
     Indication: BRAIN ABSCESS
  5. VORICONAZOLE [Concomitant]
     Indication: BRAIN ABSCESS
  6. AMPHOTERICIN B [Concomitant]
     Indication: BRAIN ABSCESS
  7. HYPERBARIC OXYGEN [Concomitant]
     Indication: BRAIN ABSCESS

REACTIONS (2)
  - ASPERGILLOSIS [None]
  - BRAIN ABSCESS [None]
